FAERS Safety Report 6161640-5 (Version None)
Quarter: 2009Q2

REPORT INFORMATION
  Report Type: 
  Country: None (occurrence: None)
  Receive Date: 20090417
  Receipt Date: 20090409
  Transmission Date: 20091009
  Serious: Yes (Other)
  Sender: FDA-Public Use
  Company Number: CTP20090009

PATIENT
  Age: 29 Year
  Sex: Female

DRUGS (5)
  1. CITALOPRAM 40 MG [Suspect]
     Indication: ANXIETY
     Dosage: 40 MG, DAILY, ORAL
     Route: 048
     Dates: start: 20081230
  2. CITALOPRAM 40 MG [Suspect]
     Indication: DEPRESSION
     Dosage: 40 MG, DAILY, ORAL
     Route: 048
     Dates: start: 20081230
  3. NEXIUM [Suspect]
     Indication: DYSPEPSIA
     Dosage: 40 MG, BID, ORAL
     Route: 048
  4. FLONASE [Suspect]
     Indication: HYPERSENSITIVITY
     Dosage: 2 SPRAYS EACH NOSTRIL
  5. VITAMIN TAB [Concomitant]

REACTIONS (3)
  - DRUG EXPOSURE DURING PREGNANCY [None]
  - INTRA-UTERINE DEATH [None]
  - PREGNANCY [None]
